FAERS Safety Report 24264449 (Version 1)
Quarter: 2024Q3

REPORT INFORMATION
  Report Type: Spontaneous
  Country: CN (occurrence: CN)
  Receive Date: 20240829
  Receipt Date: 20240829
  Transmission Date: 20241016
  Serious: Yes (Other)
  Sender: PURDUE
  Company Number: CN-NAPPMUNDI-GBR-2024-0119160

PATIENT
  Age: 76 Year
  Sex: Male
  Weight: 50 kg

DRUGS (4)
  1. OXYCODONE HYDROCHLORIDE [Suspect]
     Active Substance: OXYCODONE HYDROCHLORIDE
     Indication: Pain
     Dosage: 40 MILLIGRAM, Q12H (EVERY 12 HOURS)
     Route: 048
     Dates: start: 20240806, end: 20240821
  2. BEVACIZUMAB [Suspect]
     Active Substance: BEVACIZUMAB
     Indication: Colon cancer
     Dosage: 300 MILLIGRAM, DAILY
     Route: 042
     Dates: start: 20240810, end: 20240810
  3. SINTILIMAB [Suspect]
     Active Substance: SINTILIMAB
     Indication: Colon cancer
     Dosage: 200 MILLIGRAM
     Route: 065
     Dates: start: 20240810
  4. COIX LACRYMA-JOBI VAR. MA-YUEN SEED [Concomitant]
     Active Substance: COIX LACRYMA-JOBI VAR. MA-YUEN SEED
     Indication: Colon cancer
     Dosage: 100 MILLILITER, DAILY
     Route: 042
     Dates: start: 20240806, end: 20240819

REACTIONS (1)
  - Supraventricular tachycardia [Recovering/Resolving]

NARRATIVE: CASE EVENT DATE: 20240812
